FAERS Safety Report 5208973-4 (Version None)
Quarter: 2007Q1

REPORT INFORMATION
  Report Type: 
  Country: None (occurrence: None)
  Receive Date: 20070116
  Receipt Date: 20070115
  Transmission Date: 20070707
  Serious: Yes (Hospitalization)
  Sender: FDA-Public Use
  Company Number: US-GLAXOSMITHKLINE-A0634603A

PATIENT
  Sex: Female

DRUGS (1)
  1. REQUIP [Suspect]
     Indication: RESTLESS LEGS SYNDROME
     Route: 048
     Dates: start: 20061018, end: 20061101

REACTIONS (9)
  - ASTHENIA [None]
  - CHEST PAIN [None]
  - CROHN'S DISEASE [None]
  - DIZZINESS [None]
  - DYSPNOEA [None]
  - MALAISE [None]
  - SENSITIVITY OF TEETH [None]
  - TOOTHACHE [None]
  - VOMITING [None]
